FAERS Safety Report 24144191 (Version 1)
Quarter: 2024Q3

REPORT INFORMATION
  Report Type: Spontaneous
  Country: US (occurrence: US)
  Receive Date: 20240727
  Receipt Date: 20240727
  Transmission Date: 20241017
  Serious: No
  Sender: MERCK
  Company Number: US-009507513-2407USA011291

PATIENT
  Sex: Male

DRUGS (1)
  1. KEYTRUDA [Suspect]
     Active Substance: PEMBROLIZUMAB
     Indication: Lung neoplasm malignant
     Dosage: 200 MILLIGRAM, Q3W
     Route: 042
     Dates: start: 202311

REACTIONS (13)
  - Pain in extremity [Unknown]
  - Asthenia [Unknown]
  - Balance disorder [Unknown]
  - Hypopnoea [Unknown]
  - Dyspnoea [Unknown]
  - Abnormal loss of weight [Unknown]
  - Hypoaesthesia [Unknown]
  - Musculoskeletal stiffness [Unknown]
  - Peripheral coldness [Unknown]
  - Hypertonic bladder [Unknown]
  - Gastrointestinal pain [Unknown]
  - Insomnia [Unknown]
  - Housebound [Unknown]
